FAERS Safety Report 10785132 (Version 1)
Quarter: 2015Q1

REPORT INFORMATION
  Report Type: Spontaneous
  Country: US (occurrence: US)
  Receive Date: 20150211
  Receipt Date: 20150211
  Transmission Date: 20150721
  Serious: No
  Sender: FDA-Public Use
  Company Number: US-GLAXOSMITHKLINE-A1074547A

PATIENT

DRUGS (3)
  1. LAMICTAL [Suspect]
     Active Substance: LAMOTRIGINE
  2. LAMICTAL [Suspect]
     Active Substance: LAMOTRIGINE
     Indication: PRODUCT USED FOR UNKNOWN INDICATION
     Dosage: 200 MG TABLETS, UNKNOWN DOSING
     Route: 065
  3. LAMOTRIGINE TABLET [Suspect]
     Active Substance: LAMOTRIGINE
     Indication: BIPOLAR DISORDER
     Dosage: 200 MG IN THE MORNING AND 200 OR 400 MG AT NIGHT
     Route: 048
     Dates: start: 200807

REACTIONS (6)
  - Mania [Unknown]
  - Logorrhoea [Unknown]
  - Psychotic behaviour [Unknown]
  - Thinking abnormal [Unknown]
  - Product quality issue [Unknown]
  - Insomnia [Unknown]
